FAERS Safety Report 4412865-8 (Version None)
Quarter: 2004Q3

REPORT INFORMATION
  Report Type: 
  Country: None (occurrence: None)
  Receive Date: 20040802
  Receipt Date: 20040721
  Transmission Date: 20050211
  Serious: Yes (Other)
  Sender: FDA-Public Use
  Company Number: PHEH2004US07946

PATIENT
  Sex: Female

DRUGS (2)
  1. TEGRETOL [Suspect]
     Route: 064
  2. LAMICTAL [Suspect]
     Route: 064

REACTIONS (1)
  - IRRITABILITY [None]
